FAERS Safety Report 23319558 (Version 1)
Quarter: 2023Q4

REPORT INFORMATION
  Report Type: Spontaneous
  Country: US (occurrence: None)
  Receive Date: 20231220
  Receipt Date: 20231220
  Transmission Date: 20240110
  Serious: No
  Sender: FDA-Public Use
  Company Number: US-ROCHE-3239171

PATIENT
  Age: 66 Year
  Sex: Female
  Weight: 83.536 kg

DRUGS (1)
  1. ACTIVASE [Suspect]
     Active Substance: ALTEPLASE
     Indication: Cerebrovascular accident
     Dosage: RECEIVED ONCE ;ONGOING: NO
     Route: 040
     Dates: start: 20221208, end: 20221208

REACTIONS (1)
  - Rash [Unknown]
